FAERS Safety Report 4930783-3 (Version None)
Quarter: 2006Q1

REPORT INFORMATION
  Report Type: 
  Country: None (occurrence: None)
  Receive Date: 20060227
  Receipt Date: 20060207
  Transmission Date: 20060701
  Serious: Yes (Hospitalization)
  Sender: FDA-Public Use
  Company Number: 2002126946ES

PATIENT
  Age: 71 Year
  Sex: Male

DRUGS (2)
  1. IRINOTECAN HCL [Suspect]
     Indication: LUNG NEOPLASM MALIGNANT
     Dosage: 137 MG, DAY 1 + 8, EVERY 3 WEEKS, INTRAVENOUS
     Route: 042
     Dates: start: 20020826
  2. CISPLATIN [Suspect]
     Indication: LUNG NEOPLASM MALIGNANT
     Dosage: 137 MG, DAY 1, EVERY 3 WEEKS), INTRAVENOUS
     Route: 042
     Dates: start: 20020826

REACTIONS (6)
  - ASTHENIA [None]
  - BLADDER SPASM [None]
  - HYPERGLYCAEMIA [None]
  - PULMONARY SEPSIS [None]
  - SHOCK [None]
  - URINARY RETENTION [None]
